FAERS Safety Report 18062998 (Version 3)
Quarter: 2020Q4

REPORT INFORMATION
  Report Type: Spontaneous
  Country: CA (occurrence: CA)
  Receive Date: 20200723
  Receipt Date: 20201021
  Transmission Date: 20210113
  Serious: Yes (Other)
  Sender: FDA-Public Use
  Company Number: CA-PFIZER INC-2019046306

PATIENT
  Age: 65 Year
  Sex: Male
  Weight: 65 kg

DRUGS (6)
  1. XELJANZ [Suspect]
     Active Substance: TOFACITINIB CITRATE
     Indication: RHEUMATOID ARTHRITIS
     Dosage: 5 MG, 2X/DAY
     Route: 048
     Dates: start: 20181106, end: 20190128
  2. DENOSUMAB [Concomitant]
     Active Substance: DENOSUMAB
     Dosage: 60 MG (EVERY 6 MONTHS)
     Route: 058
  3. PREDNISONE. [Concomitant]
     Active Substance: PREDNISONE
     Dosage: 5 MG, 2X/DAY
  4. PREDNISONE. [Concomitant]
     Active Substance: PREDNISONE
     Dosage: 7.5 MG, 2X/DAY
  5. XELJANZ [Suspect]
     Active Substance: TOFACITINIB CITRATE
     Dosage: 5 MG, 2X/DAY
     Route: 048
     Dates: start: 2019, end: 202001
  6. ALLOPURINOL. [Concomitant]
     Active Substance: ALLOPURINOL
     Dosage: 200 MG, 1X/DAY

REACTIONS (1)
  - Spinal compression fracture [Unknown]

NARRATIVE: CASE EVENT DATE: 201909
